FAERS Safety Report 14908755 (Version 4)
Quarter: 2018Q2

REPORT INFORMATION
  Report Type: Spontaneous
  Country: US (occurrence: US)
  Receive Date: 20180517
  Receipt Date: 20180626
  Transmission Date: 20180711
  Serious: Yes (Hospitalization, Other)
  Sender: FDA-Public Use
  Company Number: US-AMGEN-USASP2018066027

PATIENT
  Age: 33 Year
  Sex: Female
  Weight: 114 kg

DRUGS (7)
  1. VITAMIN D3 [Concomitant]
     Active Substance: CHOLECALCIFEROL
     Dosage: 1000 UNIT, UNK
     Route: 048
  2. LEXAPRO [Concomitant]
     Active Substance: ESCITALOPRAM OXALATE
     Dosage: 20 MG, QD
     Route: 048
  3. ENBREL [Suspect]
     Active Substance: ETANERCEPT
     Indication: PSORIASIS
     Dosage: 50 MG, QWK
     Route: 065
     Dates: start: 201707, end: 201708
  4. XANAX [Concomitant]
     Active Substance: ALPRAZOLAM
     Indication: ANXIETY
     Dosage: 0.25 MG, BID
  5. PREVNAR [Suspect]
     Active Substance: PNEUMOCOCCAL 7-VALENT CONJUGATE VACCINE (DIPHTHERIA CRM197 PROTEIN)
     Indication: PRODUCT USED FOR UNKNOWN INDICATION
     Dosage: UNK
     Route: 065
     Dates: start: 20170731
  6. ENBREL [Suspect]
     Active Substance: ETANERCEPT
     Indication: PSORIATIC ARTHROPATHY
  7. PARAGARD T 380A [Concomitant]
     Active Substance: COPPER
     Indication: CONTRACEPTION
     Dosage: UNK
     Route: 015

REACTIONS (25)
  - Eye pain [Not Recovered/Not Resolved]
  - Vitamin D decreased [Unknown]
  - Gliosis [Unknown]
  - Psoriasis [Unknown]
  - Throat tightness [Unknown]
  - Arthralgia [Unknown]
  - Myalgia [Unknown]
  - Headache [Unknown]
  - Papule [Unknown]
  - Rash [Unknown]
  - Facial paralysis [Unknown]
  - Hyperhidrosis [Unknown]
  - Joint swelling [Unknown]
  - Skin discolouration [Unknown]
  - Sensitivity to weather change [Unknown]
  - Stress [Unknown]
  - Swelling face [Unknown]
  - Cervical spinal stenosis [Unknown]
  - Tremor [Unknown]
  - Blood glucose abnormal [Unknown]
  - Protein total increased [Unknown]
  - Demyelination [Not Recovered/Not Resolved]
  - Blood chloride increased [Unknown]
  - Blood albumin increased [Unknown]
  - C-reactive protein increased [Unknown]

NARRATIVE: CASE EVENT DATE: 201708
